FAERS Safety Report 7336430-8 (Version None)
Quarter: 2011Q1

REPORT INFORMATION
  Report Type: 
  Country: None (occurrence: None)
  Receive Date: 20110307
  Receipt Date: 20110225
  Transmission Date: 20110831
  Serious: Yes (Hospitalization, Disabling, Other)
  Sender: FDA-Public Use
  Company Number: PT-ASTRAZENECA-2011SE10835

PATIENT
  Age: 31 Year
  Sex: Female

DRUGS (4)
  1. ROSILAN [Concomitant]
     Indication: SYSTEMIC LUPUS ERYTHEMATOSUS
  2. ORAL BIRTH CONTROL [Concomitant]
  3. PLAQUINOL [Interacting]
     Indication: SYSTEMIC LUPUS ERYTHEMATOSUS
  4. EMLA [Suspect]
     Route: 061
     Dates: start: 20100601, end: 20100601

REACTIONS (2)
  - DRUG INTERACTION [None]
  - CEREBROVASCULAR ACCIDENT [None]
